FAERS Safety Report 20810340 (Version 3)
Quarter: 2022Q2

REPORT INFORMATION
  Report Type: Report from Study
  Country: US (occurrence: US)
  Receive Date: 20220510
  Receipt Date: 20220601
  Transmission Date: 20220721
  Serious: Yes (Other)
  Sender: FDA-Public Use
  Company Number: US-NOVARTISPH-NVSC2022US106516

PATIENT
  Sex: Male

DRUGS (2)
  1. ENTRESTO [Suspect]
     Active Substance: SACUBITRIL\VALSARTAN
     Indication: Product used for unknown indication
     Dosage: 2 DOSAGE FORM, BID (24/26 MG)
     Route: 048
     Dates: start: 202204
  2. ENTRESTO [Suspect]
     Active Substance: SACUBITRIL\VALSARTAN
     Dosage: 1 DOSAGE FORM, BID
     Route: 048

REACTIONS (9)
  - Diabetes mellitus [Unknown]
  - Myalgia [Recovering/Resolving]
  - Balance disorder [Unknown]
  - Fall [Unknown]
  - Weight increased [Unknown]
  - Oedema [Unknown]
  - Dyspnoea exertional [Unknown]
  - Dizziness [Unknown]
  - Fatigue [Recovering/Resolving]
